FAERS Safety Report 20163726 (Version 7)
Quarter: 2023Q1

REPORT INFORMATION
  Report Type: Spontaneous
  Country: JP (occurrence: JP)
  Receive Date: 20211209
  Receipt Date: 20230203
  Transmission Date: 20230418
  Serious: Yes (Other)
  Sender: FDA-Public Use
  Company Number: JP-UNITED THERAPEUTICS-UNT-2021-021466

PATIENT
  Age: 3 Year
  Sex: Female

DRUGS (26)
  1. UNITUXIN [Suspect]
     Active Substance: DINUTUXIMAB
     Indication: Neuroblastoma
     Dosage: 17.5 MG/M2, CYCLICAL (CYCLE 1)
     Route: 041
     Dates: start: 20211018, end: 20211021
  2. UNITUXIN [Suspect]
     Active Substance: DINUTUXIMAB
     Dosage: UNK, CYCLICAL (CYCLE 2)
     Route: 041
     Dates: start: 20211115, end: 20211118
  3. UNITUXIN [Suspect]
     Active Substance: DINUTUXIMAB
     Dosage: UNK, CYCLICAL (CYCLE 3)
     Route: 041
     Dates: start: 20211206, end: 20211209
  4. UNITUXIN [Suspect]
     Active Substance: DINUTUXIMAB
     Dosage: UNK, CYCLICAL (CYCLE 4)
     Route: 041
     Dates: start: 20220111, end: 20220114
  5. UNITUXIN [Suspect]
     Active Substance: DINUTUXIMAB
     Dosage: UNK, CYCLICAL (CYCLE 5)
     Route: 041
     Dates: start: 20220131, end: 20220203
  6. UNITUXIN [Suspect]
     Active Substance: DINUTUXIMAB
     Dosage: UNK, CYCLICAL (CYCLE 6)
     Route: 041
     Dates: start: 20220228, end: 20220303
  7. FILGRASTIM [Suspect]
     Active Substance: FILGRASTIM
     Indication: Neuroblastoma
     Dosage: 5 ?G/KG (CYCLE 1)
     Route: 058
     Dates: start: 20211015, end: 20211024
  8. FILGRASTIM [Suspect]
     Active Substance: FILGRASTIM
     Dosage: UNK (CYCLE 3)
     Route: 058
     Dates: start: 20211203, end: 20211206
  9. FILGRASTIM [Suspect]
     Active Substance: FILGRASTIM
     Dosage: 2 ?G (CYCLE 3)
     Route: 058
     Dates: start: 20211209, end: 20211212
  10. FILGRASTIM [Suspect]
     Active Substance: FILGRASTIM
     Dosage: UNK (CYCLE 5)
     Route: 058
     Dates: start: 20220128, end: 20220131
  11. FILGRASTIM [Suspect]
     Active Substance: FILGRASTIM
     Dosage: UNK (CYCLE 5, RESUMED ON 2 ?G/KG)
     Route: 058
     Dates: start: 20220203, end: 20220207
  12. TECELEUKIN [Suspect]
     Active Substance: TECELEUKIN
     Indication: Neuroblastoma
     Dosage: UNK (CYCLE 2)
     Route: 041
     Dates: start: 20211108, end: 20211111
  13. TECELEUKIN [Suspect]
     Active Substance: TECELEUKIN
     Dosage: UNK (CYCLE 2)
     Route: 041
     Dates: start: 20211115, end: 20211118
  14. TECELEUKIN [Suspect]
     Active Substance: TECELEUKIN
     Dosage: UNK (CYCLE 4)
     Route: 041
     Dates: start: 20220104, end: 20220114
  15. TECELEUKIN [Suspect]
     Active Substance: TECELEUKIN
     Dosage: UNK, (CYCLE 5)
     Route: 041
     Dates: start: 20220221, end: 20220303
  16. MORPHINE HYDROCHLORIDE [Suspect]
     Active Substance: MORPHINE HYDROCHLORIDE
     Indication: Pain
     Dosage: UNK
     Route: 065
     Dates: start: 20211018, end: 20211022
  17. MORPHINE HYDROCHLORIDE [Suspect]
     Active Substance: MORPHINE HYDROCHLORIDE
     Indication: Prophylaxis
     Dosage: UNK
     Route: 065
     Dates: start: 20211115, end: 20211118
  18. MORPHINE HYDROCHLORIDE [Suspect]
     Active Substance: MORPHINE HYDROCHLORIDE
     Dosage: UNK
     Route: 065
     Dates: start: 20211206, end: 20211209
  19. ACETAMINOPHEN [Concomitant]
     Active Substance: ACETAMINOPHEN
     Indication: Pyrexia
     Dosage: UNK
     Route: 065
     Dates: start: 20211018, end: 20211022
  20. ACETAMINOPHEN [Concomitant]
     Active Substance: ACETAMINOPHEN
     Indication: Prophylaxis
     Dosage: UNK
     Route: 065
     Dates: start: 20211108, end: 20211111
  21. ACETAMINOPHEN [Concomitant]
     Active Substance: ACETAMINOPHEN
     Dosage: UNK
     Route: 065
     Dates: start: 20211115, end: 20211118
  22. ACETAMINOPHEN [Concomitant]
     Active Substance: ACETAMINOPHEN
     Dosage: UNK
     Route: 065
     Dates: start: 20211206, end: 20211209
  23. HYDROXYZINE [Concomitant]
     Active Substance: HYDROXYZINE HYDROCHLORIDE
     Indication: Prophylaxis
     Dosage: UNK
     Route: 065
     Dates: start: 20211018, end: 20211022
  24. HYDROXYZINE [Concomitant]
     Active Substance: HYDROXYZINE HYDROCHLORIDE
     Dosage: UNK
     Route: 065
     Dates: start: 20211108, end: 20211111
  25. HYDROXYZINE [Concomitant]
     Active Substance: HYDROXYZINE HYDROCHLORIDE
     Dosage: UNK
     Route: 065
     Dates: start: 20211115, end: 20211118
  26. HYDROXYZINE [Concomitant]
     Active Substance: HYDROXYZINE HYDROCHLORIDE
     Dosage: UNK
     Route: 065
     Dates: start: 20211206, end: 20211209

REACTIONS (22)
  - Urinary retention [Recovered/Resolved]
  - Pulmonary oedema [Recovered/Resolved]
  - Hallucination, visual [Recovered/Resolved]
  - Hypoxia [Recovered/Resolved]
  - Pyrexia [Recovered/Resolved]
  - White blood cell count increased [Not Recovered/Not Resolved]
  - Eyelid oedema [Recovered/Resolved]
  - Pyrexia [Recovered/Resolved]
  - Vomiting [Recovered/Resolved]
  - Pyrexia [Recovered/Resolved]
  - Weight increased [Recovered/Resolved]
  - Eyelid oedema [Recovered/Resolved]
  - White blood cell count increased [Not Recovered/Not Resolved]
  - Eyelid oedema [Recovered/Resolved]
  - Pyrexia [Recovered/Resolved]
  - Eyelid oedema [Recovered/Resolved]
  - Pyrexia [Recovered/Resolved]
  - White blood cell count increased [Not Recovered/Not Resolved]
  - Pyrexia [Recovered/Resolved]
  - Confusional state [Recovered/Resolved]
  - Pain in extremity [Recovered/Resolved]
  - Pyrexia [Recovered/Resolved]

NARRATIVE: CASE EVENT DATE: 20211018
